FAERS Safety Report 9685173 (Version 1)
Quarter: 2013Q4

REPORT INFORMATION
  Report Type: Spontaneous
  Country: US (occurrence: None)
  Receive Date: 20131112
  Receipt Date: 20131112
  Transmission Date: 20140711
  Serious: No
  Sender: FDA-Public Use
  Company Number: None

PATIENT
  Age: 27 Year
  Sex: Female
  Weight: 68.04 kg

DRUGS (1)
  1. DYMISTA [Suspect]
     Indication: RHINITIS
     Dosage: ONE SPRAY EACH NOSTRIL TWICE DAILY INHALATION
     Route: 055

REACTIONS (4)
  - Paraesthesia [None]
  - Burning sensation [None]
  - Headache [None]
  - Temporomandibular joint syndrome [None]
